FAERS Safety Report 17988502 (Version 1)
Quarter: 2020Q3

REPORT INFORMATION
  Report Type: Spontaneous
  Country: US (occurrence: US)
  Receive Date: 20200706
  Receipt Date: 20200706
  Transmission Date: 20201103
  Serious: Yes (Other)
  Sender: FDA-Public Use
  Company Number: None

PATIENT
  Age: 51 Year
  Sex: Female
  Weight: 92.25 kg

DRUGS (10)
  1. HYOSCYAMINE. [Concomitant]
     Active Substance: HYOSCYAMINE
  2. DULAGLUTIDE. [Concomitant]
     Active Substance: DULAGLUTIDE
  3. VITAMIN D 3003MG [Concomitant]
  4. LISINOPRIL. [Concomitant]
     Active Substance: LISINOPRIL
  5. METOPROLOL. [Concomitant]
     Active Substance: METOPROLOL
  6. SITAGLIPTIN?METFORMIN [Concomitant]
     Active Substance: METFORMIN\SITAGLIPTIN
  7. REYVOW [Suspect]
     Active Substance: LASMIDITAN
     Indication: MIGRAINE
     Dosage: ?          QUANTITY:1 TABLET(S);?
     Route: 048
     Dates: start: 20200704, end: 20200705
  8. SIMVASTATIN. [Concomitant]
     Active Substance: SIMVASTATIN
  9. BUTALBITAL, ACETAMINOPHEN, AND CAFFEINE [Concomitant]
     Active Substance: ACETAMINOPHEN\BUTALBITAL\CAFFEINE
  10. LEVOTHYROXINE. [Concomitant]
     Active Substance: LEVOTHYROXINE

REACTIONS (10)
  - Confusional state [None]
  - Chills [None]
  - Hyperreflexia [None]
  - Abdominal discomfort [None]
  - Serotonin syndrome [None]
  - Hyperhidrosis [None]
  - Dystonia [None]
  - Hypertension [None]
  - Tachycardia [None]
  - Tremor [None]

NARRATIVE: CASE EVENT DATE: 20200705
